FAERS Safety Report 5488982-0 (Version None)
Quarter: 2007Q4

REPORT INFORMATION
  Report Type: 
  Country: None (occurrence: None)
  Receive Date: 20071015
  Receipt Date: 20070626
  Transmission Date: 20080405
  Serious: No
  Sender: FDA-Public Use
  Company Number: 2007SP002361

PATIENT
  Age: 84 Year
  Sex: Female

DRUGS (1)
  1. LUNESTA [Suspect]
     Dosage: 1 MG; ORAL; 0.5 MG; ORAL

REACTIONS (1)
  - THERAPEUTIC RESPONSE INCREASED [None]
